FAERS Safety Report 8394135-9 (Version None)
Quarter: 2012Q2

REPORT INFORMATION
  Report Type: 
  Country: None (occurrence: None)
  Receive Date: 20120530
  Receipt Date: 20120528
  Transmission Date: 20120825
  Serious: Yes (Death, Hospitalization, Other)
  Sender: FDA-Public Use
  Company Number: JP-JNJFOC-20101204476

PATIENT
  Sex: Female

DRUGS (25)
  1. DOXIL [Suspect]
     Indication: OVARIAN CANCER RECURRENT
     Dosage: CYCLE 2
     Route: 042
     Dates: start: 20100428, end: 20100428
  2. LOXOPROFEN SODIUM [Concomitant]
     Route: 048
  3. DOXIL [Suspect]
     Dosage: CYCLE 1
     Route: 042
     Dates: start: 20100331, end: 20100331
  4. CLOBETASOL PROPIONATE [Concomitant]
     Indication: PRURITUS
     Route: 061
  5. PURSENNID [Concomitant]
     Indication: CONSTIPATION
     Route: 048
  6. AZUNOL [Concomitant]
     Indication: STOMATITIS
     Route: 049
     Dates: start: 20100413, end: 20100526
  7. ZOFRAN [Concomitant]
     Indication: PRODUCT USED FOR UNKNOWN INDICATION
     Route: 048
     Dates: start: 20081227
  8. EURAX [Concomitant]
     Indication: SINUSITIS
     Route: 061
     Dates: start: 20100611
  9. DOXIL [Suspect]
     Dosage: CYCLE 3
     Route: 042
     Dates: start: 20100526, end: 20100526
  10. LIPIDIL [Suspect]
     Indication: PRODUCT USED FOR UNKNOWN INDICATION
     Route: 048
  11. MUCOSTA [Concomitant]
     Indication: GASTRITIS
     Route: 048
  12. LOXOPROFEN SODIUM [Concomitant]
     Indication: PRODUCT USED FOR UNKNOWN INDICATION
     Route: 048
  13. CYANOCOBALAMIN [Concomitant]
     Indication: PROPHYLAXIS
     Route: 048
     Dates: start: 20100331, end: 20100903
  14. OXATOMIDE [Concomitant]
     Indication: SINUSITIS
     Route: 048
  15. DECADRON [Concomitant]
     Indication: PROPHYLAXIS
     Route: 042
     Dates: start: 20100804, end: 20100804
  16. WHITE PETROLATUM [Concomitant]
     Indication: SINUSITIS
     Route: 061
     Dates: start: 20100611
  17. HIRUDOID CREAM [Concomitant]
     Indication: PRURITUS
     Route: 061
  18. GRANISETRON [Concomitant]
     Indication: PROPHYLAXIS
     Route: 042
     Dates: start: 20100804, end: 20100804
  19. PREMARIN [Concomitant]
     Indication: MENOPAUSAL SYMPTOMS
     Route: 048
     Dates: start: 20090119
  20. ATARAX [Concomitant]
     Indication: PRURITUS
     Route: 048
  21. DOXIL [Suspect]
     Dosage: CYCLE 4
     Route: 042
     Dates: start: 20100630, end: 20100630
  22. MYSER [Concomitant]
     Indication: PRURITUS
     Route: 061
  23. DOXIL [Suspect]
     Dosage: CYCLE 5
     Route: 042
     Dates: start: 20100804, end: 20100804
  24. LECICARBON [Concomitant]
     Indication: CONSTIPATION
     Route: 054
     Dates: end: 20100526
  25. DECADRON [Concomitant]
     Route: 048
     Dates: start: 20100803, end: 20100809

REACTIONS (3)
  - OVARIAN CANCER RECURRENT [None]
  - ASPARTATE AMINOTRANSFERASE INCREASED [None]
  - PNEUMONIA [None]
